FAERS Safety Report 19185095 (Version 2)
Quarter: 2021Q3

REPORT INFORMATION
  Report Type: Report from Study
  Country: CO (occurrence: CO)
  Receive Date: 20210427
  Receipt Date: 20210802
  Transmission Date: 20211014
  Serious: Yes (Hospitalization, Other)
  Sender: FDA-Public Use
  Company Number: NVSC2020CO055321

PATIENT
  Age: 28 Year
  Sex: Female
  Weight: 65 kg

DRUGS (2)
  1. GILENYA [Suspect]
     Active Substance: FINGOLIMOD HYDROCHLORIDE
     Dosage: 0.5 MG, QD
     Route: 048
  2. GILENYA [Suspect]
     Active Substance: FINGOLIMOD HYDROCHLORIDE
     Indication: MULTIPLE SCLEROSIS
     Dosage: 0.5 MG, QD
     Route: 048
     Dates: start: 20191204

REACTIONS (10)
  - Gait disturbance [Unknown]
  - Dizziness [Not Recovered/Not Resolved]
  - Multiple sclerosis relapse [Unknown]
  - Speech disorder [Not Recovered/Not Resolved]
  - Memory impairment [Unknown]
  - Ageusia [Unknown]
  - Facial paralysis [Unknown]
  - Diplopia [Unknown]
  - Hypoacusis [Unknown]
  - Product dose omission issue [Unknown]

NARRATIVE: CASE EVENT DATE: 202001
